FAERS Safety Report 23529398 (Version 2)
Quarter: 2024Q1

REPORT INFORMATION
  Report Type: Spontaneous
  Country: US (occurrence: US)
  Receive Date: 20240216
  Receipt Date: 20240219
  Transmission Date: 20240409
  Serious: Yes (Hospitalization, Other)
  Sender: FDA-Public Use
  Company Number: US-SANDOZ-SDZ2024US013225

PATIENT
  Age: 27 Year
  Sex: Female

DRUGS (4)
  1. AMITRIPTYLINE [Suspect]
     Active Substance: AMITRIPTYLINE
     Indication: Status migrainosus
     Route: 065
  2. PREDNISONE [Suspect]
     Active Substance: PREDNISONE
     Indication: Status migrainosus
     Route: 065
  3. TOPIRAMATE [Suspect]
     Active Substance: TOPIRAMATE
     Indication: Status migrainosus
     Route: 065
  4. VALPROATE [Suspect]
     Active Substance: VALPROIC ACID
     Indication: Status migrainosus
     Route: 065

REACTIONS (2)
  - Fat embolism syndrome [Unknown]
  - Drug ineffective [Unknown]
